FAERS Safety Report 9919735 (Version 2)
Quarter: 2014Q1

REPORT INFORMATION
  Report Type: Spontaneous
  Country: US (occurrence: US)
  Receive Date: 20140224
  Receipt Date: 20140224
  Transmission Date: 20141002
  Serious: Yes (Hospitalization)
  Sender: FDA-Public Use
  Company Number: US-GLAXOSMITHKLINE-A0796497A

PATIENT
  Age: 50 Year
  Sex: Female

DRUGS (2)
  1. AVANDIA [Suspect]
     Indication: TYPE 2 DIABETES MELLITUS
     Dosage: 4MG TWICE PER DAY
     Route: 065
     Dates: start: 199912, end: 20070207
  2. AVANDARYL [Suspect]
     Indication: TYPE 2 DIABETES MELLITUS
     Route: 048

REACTIONS (5)
  - Cardiovascular disorder [Unknown]
  - Myocardial infarction [Unknown]
  - Dyspnoea [Unknown]
  - Local swelling [Unknown]
  - Fatigue [Unknown]
